FAERS Safety Report 7439514-9 (Version None)
Quarter: 2011Q2

REPORT INFORMATION
  Report Type: 
  Country: None (occurrence: None)
  Receive Date: 20110427
  Receipt Date: 20110418
  Transmission Date: 20111010
  Serious: Yes (Death, Hospitalization, Other)
  Sender: FDA-Public Use
  Company Number: US-SANOFI-AVENTIS-2011SA017218

PATIENT
  Age: 51 Year
  Sex: Male
  Weight: 73 kg

DRUGS (3)
  1. COUMADIN [Concomitant]
     Indication: ATRIAL FIBRILLATION
     Dates: end: 20110227
  2. ANTIPROPULSIVES [Concomitant]
     Dates: start: 20110227
  3. MULTAQ [Suspect]
     Indication: ATRIAL FIBRILLATION
     Route: 048
     Dates: start: 20110112, end: 20110227

REACTIONS (8)
  - HYPOMAGNESAEMIA [None]
  - SYNCOPE [None]
  - DIARRHOEA [None]
  - LIVER FUNCTION TEST ABNORMAL [None]
  - NERVOUS SYSTEM DISORDER [None]
  - EJECTION FRACTION DECREASED [None]
  - HYPOKALAEMIA [None]
  - VENTRICULAR FIBRILLATION [None]
